FAERS Safety Report 9484810 (Version 1)
Quarter: 2013Q3

REPORT INFORMATION
  Report Type: Spontaneous
  Country: US (occurrence: US)
  Receive Date: 20130828
  Receipt Date: 20130828
  Transmission Date: 20140515
  Serious: Yes (Other)
  Sender: FDA-Public Use
  Company Number: US-AMGEN-USASP2010010141

PATIENT
  Age: 58 Year
  Sex: Male

DRUGS (2)
  1. ENBREL [Suspect]
     Indication: RHEUMATOID ARTHRITIS
     Dosage: 50 MG, QWK
     Route: 065
     Dates: start: 2005, end: 2008
  2. REMICADE [Concomitant]

REACTIONS (13)
  - Hypoaesthesia [Not Recovered/Not Resolved]
  - Swelling face [Recovered/Resolved]
  - Dyspnoea [Unknown]
  - Urticaria [Recovered/Resolved]
  - Feeling hot [Recovered/Resolved]
  - Feeling abnormal [Unknown]
  - Rash pruritic [Unknown]
  - Rheumatoid arthritis [Recovered/Resolved]
  - Pneumonia [Recovered/Resolved]
  - Nasopharyngitis [Recovered/Resolved]
  - Pyrexia [Recovered/Resolved]
  - Injection site pain [Recovered/Resolved]
  - Paraesthesia [Not Recovered/Not Resolved]
